FAERS Safety Report 5960699-5 (Version None)
Quarter: 2008Q4

REPORT INFORMATION
  Report Type: 
  Country: None (occurrence: None)
  Receive Date: 20081120
  Receipt Date: 20081117
  Transmission Date: 20090506
  Serious: Yes (Hospitalization)
  Sender: FDA-Public Use
  Company Number: FR-PFIZER INC-2008021147

PATIENT
  Age: 77 Year
  Sex: Female

DRUGS (3)
  1. SALAZOPYRINE [Suspect]
     Indication: ARTHRALGIA
     Route: 048
     Dates: start: 20071026, end: 20071122
  2. INIPOMP [Suspect]
     Indication: PROPHYLAXIS
     Route: 048
     Dates: start: 20071026, end: 20071122
  3. ACECLOFENAC [Suspect]
     Indication: ARTHRALGIA
     Route: 048
     Dates: start: 20071026, end: 20071122

REACTIONS (2)
  - DRUG RASH WITH EOSINOPHILIA AND SYSTEMIC SYMPTOMS [None]
  - RENAL FAILURE ACUTE [None]
